FAERS Safety Report 18637162 (Version 1)
Quarter: 2020Q4

REPORT INFORMATION
  Report Type: Spontaneous
  Country: IT (occurrence: IT)
  Receive Date: 20201218
  Receipt Date: 20201218
  Transmission Date: 20210114
  Serious: Yes (Hospitalization)
  Sender: FDA-Public Use
  Company Number: IT-MYLANLABS-2020M1101276

PATIENT
  Age: 15 Day
  Sex: Male

DRUGS (2)
  1. ISOTRETINOIN. [Suspect]
     Active Substance: ISOTRETINOIN
     Indication: ACNE FULMINANS
     Dosage: 0.5 MILLIGRAM/KILOGRAM, QD
  2. SERTRALINE [Concomitant]
     Active Substance: SERTRALINE HYDROCHLORIDE
     Indication: DEPRESSIVE SYMPTOM
     Dosage: UNK

REACTIONS (8)
  - Insomnia [Recovered/Resolved]
  - Bone marrow oedema [Recovered/Resolved]
  - Osteitis [Recovered/Resolved]
  - Depressive symptom [Recovered/Resolved]
  - SAPHO syndrome [Recovered/Resolved]
  - Drug ineffective [Recovered/Resolved]
  - Sacroiliitis [Recovered/Resolved]
  - Irritability [Recovered/Resolved]
